FAERS Safety Report 8433933-X (Version None)
Quarter: 2012Q2

REPORT INFORMATION
  Report Type: 
  Country: None (occurrence: None)
  Receive Date: 20120613
  Receipt Date: 20120529
  Transmission Date: 20120825
  Serious: Yes (Other)
  Sender: FDA-Public Use
  Company Number: JP-PFIZER INC-2012130191

PATIENT
  Age: 74 Year
  Sex: Female

DRUGS (27)
  1. NILDILART [Concomitant]
     Dosage: UNK
  2. SEDEKOPAN [Concomitant]
     Dosage: UNK
  3. OLOPATADINE HCL [Concomitant]
     Dosage: UNK
  4. MUCODYNE [Concomitant]
     Indication: NASOPHARYNGITIS
     Dosage: UNK
  5. HUSCODE [Concomitant]
     Indication: NASOPHARYNGITIS
     Dosage: UNK
  6. TANATRIL ^ALGOL^ [Concomitant]
     Dosage: UNK
  7. ALLOPURINOL [Concomitant]
     Dosage: UNK
  8. MECOBALAMIN [Concomitant]
     Dosage: UNK
  9. ALFAROL [Concomitant]
     Dosage: UNK
  10. MUCOSOLVAN [Concomitant]
     Indication: NASOPHARYNGITIS
     Dosage: UNK
  11. CELEBREX [Suspect]
     Indication: MUSCULOSKELETAL PAIN
     Dosage: 100 MG, 2X/DAY
     Route: 048
     Dates: start: 20110420
  12. PROTECADIN [Concomitant]
     Dosage: UNK
  13. CRESTOR [Concomitant]
     Dosage: UNK
  14. JANUVIA [Concomitant]
     Dosage: UNK
  15. MYTEAR [Concomitant]
     Dosage: UNK
  16. CLARITHROMYCIN [Concomitant]
     Indication: NASOPHARYNGITIS
     Dosage: UNK
  17. CELEBREX [Suspect]
     Indication: BACK PAIN
  18. ASPIRIN [Concomitant]
     Dosage: UNK
  19. LOXONIN [Concomitant]
     Indication: NASOPHARYNGITIS
     Dosage: UNK (TAPE)
  20. LOXONIN [Concomitant]
     Dosage: UNK
  21. METFORMIN HYDROCHLORIDE [Concomitant]
     Dosage: UNK
  22. MUCOSTA [Concomitant]
     Dosage: UNK
  23. TRANSAMINE CAP [Concomitant]
     Indication: NASOPHARYNGITIS
     Dosage: UNK
  24. BROCIN-CODEINE [Concomitant]
     Indication: NASOPHARYNGITIS
     Dosage: UNK
  25. AMARYL [Concomitant]
     Dosage: UNK
  26. TETRAMIDE [Concomitant]
     Dosage: UNK
  27. EMPYNASE P [Concomitant]
     Indication: NASOPHARYNGITIS
     Dosage: UNK

REACTIONS (3)
  - NASOPHARYNGITIS [None]
  - CARDIAC DISORDER [None]
  - ANGINA PECTORIS [None]
